FAERS Safety Report 6252819-2 (Version None)
Quarter: 2009Q3

REPORT INFORMATION
  Report Type: 
  Country: None (occurrence: None)
  Receive Date: 20090701
  Receipt Date: 20090622
  Transmission Date: 20100115
  Serious: Yes (Hospitalization)
  Sender: FDA-Public Use
  Company Number: DEWYE726308JUN05

PATIENT
  Sex: Female

DRUGS (40)
  1. SIROLIMUS [Suspect]
     Indication: PROPHYLAXIS AGAINST TRANSPLANT REJECTION
     Route: 048
     Dates: start: 20040311, end: 20040312
  2. SIROLIMUS [Suspect]
     Route: 048
     Dates: start: 20040313, end: 20041010
  3. SIROLIMUS [Suspect]
     Route: 048
     Dates: start: 20041011, end: 20041018
  4. SIROLIMUS [Suspect]
     Route: 048
     Dates: start: 20041019, end: 20041211
  5. SIROLIMUS [Suspect]
     Route: 048
     Dates: start: 20050916
  6. MYCOPHENOLATE MOFETIL [Suspect]
     Indication: PROPHYLAXIS AGAINST TRANSPLANT REJECTION
     Route: 048
     Dates: start: 20040311, end: 20040311
  7. MYCOPHENOLATE MOFETIL [Suspect]
     Route: 048
     Dates: start: 20040312, end: 20040609
  8. MYCOPHENOLATE MOFETIL [Suspect]
     Route: 048
     Dates: start: 20040610, end: 20041210
  9. MYCOPHENOLATE MOFETIL [Suspect]
     Route: 048
     Dates: start: 20050315, end: 20050509
  10. MYCOPHENOLATE MOFETIL [Suspect]
     Route: 048
     Dates: start: 20050516, end: 20050923
  11. PREDNISOLONE SODIUM SUCCINATE INJ [Suspect]
     Indication: PROPHYLAXIS AGAINST TRANSPLANT REJECTION
     Route: 042
     Dates: start: 20040311, end: 20040311
  12. PREDNISOLONE SODIUM SUCCINATE INJ [Suspect]
     Route: 042
     Dates: start: 20040312, end: 20040312
  13. PREDNISOLONE SODIUM SUCCINATE INJ [Suspect]
     Dates: start: 20040101, end: 20050905
  14. DECORTIN [Suspect]
     Indication: PROPHYLAXIS AGAINST TRANSPLANT REJECTION
     Route: 048
     Dates: start: 20040313, end: 20040101
  15. DECORTIN [Suspect]
     Dates: start: 20041013, end: 20041211
  16. DECORTIN [Suspect]
     Dosage: UNKNOWN
     Route: 048
  17. DECORTIN [Suspect]
     Route: 048
     Dates: start: 20040101, end: 20041012
  18. PREDNISOLONE [Suspect]
     Indication: PROPHYLAXIS AGAINST TRANSPLANT REJECTION
     Route: 048
     Dates: start: 20040313
  19. ROCEPHIN [Concomitant]
     Indication: GASTROENTERITIS
     Route: 042
     Dates: start: 20051012, end: 20051018
  20. ROCEPHIN [Concomitant]
     Dosage: UNKNOWN
     Dates: start: 20040311
  21. METRONIDAZOLE HCL [Concomitant]
     Indication: GASTROENTERITIS
     Route: 042
     Dates: start: 20051012, end: 20051018
  22. CIPROFLOXACIN [Concomitant]
     Indication: URINARY TRACT INFECTION
     Dates: start: 20051013, end: 20051023
  23. PRIMAXIN [Concomitant]
     Indication: URINARY TRACT INFECTION
     Dosage: 3G PER DAY
     Route: 042
     Dates: start: 20060307, end: 20060311
  24. TACROLIMUS [Concomitant]
     Indication: PROPHYLAXIS AGAINST TRANSPLANT REJECTION
     Route: 048
     Dates: start: 20050620, end: 20051011
  25. CYCLOSPORINE [Suspect]
     Dosage: 200MG ON 15-DEC-2004, LATER 75MG PER DAY UNTIL 21-JUN-2005
     Route: 048
  26. HYDROCORTISONE [Suspect]
     Indication: PROPHYLAXIS AGAINST TRANSPLANT REJECTION
     Route: 042
     Dates: start: 20041212
  27. AMPHOTERICIN B [Concomitant]
     Dosage: UNKNOWN
     Dates: start: 20040312, end: 20040429
  28. CEFUROXIME [Concomitant]
     Dosage: UNKNOWN
     Dates: start: 20050224, end: 20050101
  29. CIPROBAY [Concomitant]
     Dosage: 500MG PER DAY
     Dates: start: 20040407, end: 20060701
  30. COTRIMEL FORTE [Concomitant]
     Dosage: UNKNOWN
     Dates: start: 20040317, end: 20040424
  31. CYMEVENE [Concomitant]
     Dosage: UNKNOWN
     Dates: start: 20040311
  32. LOCOL [Concomitant]
     Dosage: UNKNOWN
     Dates: start: 20050612, end: 20060307
  33. NORVASC [Concomitant]
     Dosage: UNKNOWN
     Dates: start: 20040311, end: 20040910
  34. SIMVASTATIN [Concomitant]
     Dosage: UNKNOWN
     Dates: start: 20050315, end: 20050612
  35. SIMVASTATIN [Concomitant]
     Dosage: UNKNOWN
     Dates: start: 20060307
  36. ATORVASTATIN CALCIUM [Concomitant]
     Dosage: UNKNOWN
     Dates: start: 20040313, end: 20050314
  37. VALCYTE [Concomitant]
     Dosage: UNKNOWN
     Dates: start: 20040315, end: 20040919
  38. PRIMAXIN [Concomitant]
     Dosage: UNKNOWN
     Dates: start: 20040423, end: 20060312
  39. ZENAPAX [Suspect]
     Indication: PROPHYLAXIS AGAINST TRANSPLANT REJECTION
     Route: 042
     Dates: start: 20040311, end: 20040311
  40. ZENAPAX [Suspect]
     Route: 042
     Dates: start: 20040326, end: 20040506

REACTIONS (5)
  - GASTROENTERITIS [None]
  - PYELONEPHRITIS [None]
  - SQUAMOUS CELL CARCINOMA [None]
  - URINARY TRACT INFECTION [None]
  - UROSEPSIS [None]
